FAERS Safety Report 17612609 (Version 6)
Quarter: 2020Q2

REPORT INFORMATION
  Report Type: Spontaneous
  Country: CN (occurrence: CN)
  Receive Date: 20200401
  Receipt Date: 20200423
  Transmission Date: 20200713
  Serious: Yes (Death, Other)
  Sender: FDA-Public Use
  Company Number: CN-ABBVIE-20P-035-3347247-00

PATIENT
  Age: 36 Year
  Sex: Female

DRUGS (1)
  1. HUMIRA [Suspect]
     Active Substance: ADALIMUMAB
     Indication: PRODUCT USED FOR UNKNOWN INDICATION
     Dosage: 6 DOSES TOTAL
     Route: 058
     Dates: end: 20190821

REACTIONS (7)
  - Infection [Unknown]
  - Myocarditis septic [Fatal]
  - Seizure [Unknown]
  - Pneumonia [Unknown]
  - Disseminated intravascular coagulation [Unknown]
  - Gingival bleeding [Unknown]
  - Septic shock [Fatal]

NARRATIVE: CASE EVENT DATE: 20190825
